FAERS Safety Report 17529428 (Version 1)
Quarter: 2020Q1

REPORT INFORMATION
  Report Type: Spontaneous
  Country: IT (occurrence: IT)
  Receive Date: 20200311
  Receipt Date: 20200311
  Transmission Date: 20200409
  Serious: Yes (Hospitalization)
  Sender: FDA-Public Use
  Company Number: IT-MYLANLABS-2020M1025777

PATIENT
  Age: 85 Year
  Sex: Male

DRUGS (1)
  1. KLACID 500 MG/10 ML POLVERE E SOLVENTE PER SOLUZIONE PER INFUSIONE [Suspect]
     Active Substance: CLARITHROMYCIN
     Indication: BRONCHITIS
     Dosage: 1000 MILLIGRAM, QD
     Route: 041
     Dates: start: 20200120, end: 20200122

REACTIONS (2)
  - Injection site phlebitis [Recovering/Resolving]
  - Injection site pain [Recovering/Resolving]

NARRATIVE: CASE EVENT DATE: 20200120
